FAERS Safety Report 8268786-6 (Version None)
Quarter: 2012Q2

REPORT INFORMATION
  Report Type: 
  Country: None (occurrence: None)
  Receive Date: 20120409
  Receipt Date: 20120409
  Transmission Date: 20120825
  Serious: Yes (Other)
  Sender: FDA-Public Use
  Company Number: None

PATIENT
  Age: 86 Year
  Sex: Male

DRUGS (3)
  1. DILTIAZEM HCL [Concomitant]
     Indication: HYPERTENSION
     Dosage: 300MG
     Route: 048
  2. COLCHICINE [Concomitant]
     Route: 048
  3. SIMVASTATIN [Suspect]
     Indication: HYPERLIPIDAEMIA
     Dosage: 80MG
     Route: 048

REACTIONS (3)
  - RENAL FAILURE CHRONIC [None]
  - ASTHENIA [None]
  - GAIT DISTURBANCE [None]
